FAERS Safety Report 6365953-3 (Version None)
Quarter: 2009Q3

REPORT INFORMATION
  Report Type: 
  Country: None (occurrence: None)
  Receive Date: 20090919
  Receipt Date: 20090826
  Transmission Date: 20100115
  Serious: No
  Sender: FDA-Public Use
  Company Number: US-ABBOTT-09P-163-0594019-00

PATIENT
  Sex: Male
  Weight: 90.8 kg

DRUGS (6)
  1. HUMIRA [Suspect]
     Indication: PSORIATIC ARTHROPATHY
     Route: 058
     Dates: start: 20060701
  2. MOBIC [Concomitant]
     Indication: ARTHRALGIA
     Route: 048
  3. MOBIC [Concomitant]
     Indication: SWELLING
  4. MULTI-VITAMIN [Concomitant]
     Indication: VITAMIN SUPPLEMENTATION
     Route: 048
  5. FLAX SEED [Concomitant]
     Indication: BLOOD CHOLESTEROL
     Route: 048
  6. FISH OIL [Concomitant]
     Indication: CARDIAC DISORDER
     Route: 048

REACTIONS (3)
  - DRUG DOSE OMISSION [None]
  - JOINT SWELLING [None]
  - PAIN IN EXTREMITY [None]
